FAERS Safety Report 24042328 (Version 2)
Quarter: 2024Q3

REPORT INFORMATION
  Report Type: Spontaneous
  Country: DE (occurrence: DE)
  Receive Date: 20240702
  Receipt Date: 20240903
  Transmission Date: 20241016
  Serious: Yes (Hospitalization)
  Sender: SANDOZ
  Company Number: DE-JNJFOC-20240645435

PATIENT
  Age: 8 Decade
  Sex: Female
  Weight: 82 kg

DRUGS (4)
  1. DEXAMETHASONE [Suspect]
     Active Substance: DEXAMETHASONE
     Indication: Plasma cell myeloma
     Dosage: LAST DOSE BEFORE EVENT 16-JAN-2020
     Route: 065
     Dates: start: 20200114, end: 20220902
  2. DARATUMUMAB [Suspect]
     Active Substance: DARATUMUMAB
     Indication: Plasma cell myeloma
     Dosage: LINE 1LAST DOSE BEFORE EVENT: 15-JAN-2020
     Route: 042
     Dates: start: 20200114, end: 20200406
  3. DARATUMUMAB [Suspect]
     Active Substance: DARATUMUMAB
     Dosage: 656 MG
     Route: 042
     Dates: start: 20200115
  4. REVLIMID [Suspect]
     Active Substance: LENALIDOMIDE
     Indication: Plasma cell myeloma
     Dosage: LAST DOSE BEFORE EVENT: 20-JAN-2020
     Route: 065
     Dates: start: 20200114, end: 20220907

REACTIONS (1)
  - Urosepsis [Recovered/Resolved]

NARRATIVE: CASE EVENT DATE: 20200120
